FAERS Safety Report 18510925 (Version 1)
Quarter: 2020Q4

REPORT INFORMATION
  Report Type: Spontaneous
  Country: CA (occurrence: CA)
  Receive Date: 20201117
  Receipt Date: 20201117
  Transmission Date: 20210114
  Serious: Yes (Other)
  Sender: FDA-Public Use
  Company Number: CA-JNJFOC-20201109175

PATIENT
  Age: 52 Year
  Sex: Female
  Weight: 62 kg

DRUGS (8)
  1. INFLIXIMAB, RECOMBINANT [Suspect]
     Active Substance: INFLIXIMAB
     Indication: PSORIATIC ARTHROPATHY
     Route: 042
  2. DIPHENHYDRAMINE. [Concomitant]
     Active Substance: DIPHENHYDRAMINE
     Indication: PREMEDICATION
     Route: 048
  3. CELECOXIB. [Concomitant]
     Active Substance: CELECOXIB
     Route: 048
  4. REMICADE [Concomitant]
     Active Substance: INFLIXIMAB
     Indication: PSORIATIC ARTHROPATHY
     Dosage: FORM: POWDER FOR SOLUTION
     Route: 042
  5. PANTOPRAZOLE MAGNESIUM [Concomitant]
     Active Substance: PANTOPRAZOLE MAGNESIUM
     Dosage: FREQUENCY: AS REQUIRED
     Route: 048
  6. PREGABALIN. [Concomitant]
     Active Substance: PREGABALIN
     Route: 048
  7. FOLINIC ACID [Concomitant]
     Active Substance: LEUCOVORIN
     Route: 048
  8. METHOTREXATE. [Concomitant]
     Active Substance: METHOTREXATE
     Route: 058

REACTIONS (6)
  - Product use issue [Not Recovered/Not Resolved]
  - Blood pressure increased [Not Recovered/Not Resolved]
  - Weight increased [Not Recovered/Not Resolved]
  - Intentional product use issue [Not Recovered/Not Resolved]
  - C-reactive protein increased [Not Recovered/Not Resolved]
  - Off label use [Not Recovered/Not Resolved]
